FAERS Safety Report 5763869-4 (Version None)
Quarter: 2008Q2

REPORT INFORMATION
  Report Type: 
  Country: None (occurrence: None)
  Receive Date: 20080606
  Receipt Date: 20080606
  Transmission Date: 20081010
  Serious: Yes (Other)
  Sender: FDA-Public Use
  Company Number: None

PATIENT
  Age: 4 Year
  Sex: Female
  Weight: 18 kg

DRUGS (2)
  1. BOTOX [Suspect]
     Indication: CEREBRAL PALSY
     Dosage: 100 UNITS EVERY 4 MONTHS IM
     Route: 030
     Dates: start: 20080107, end: 20080107
  2. BOTOX [Suspect]
     Indication: CEREBRAL PALSY
     Dosage: 100 UNITS EVERY 4 MONTHS IM
     Route: 030
     Dates: start: 20080512, end: 20080512

REACTIONS (1)
  - CONVULSION [None]
